FAERS Safety Report 21185613 (Version 3)
Quarter: 2022Q3

REPORT INFORMATION
  Report Type: Spontaneous
  Country: CA (occurrence: CA)
  Receive Date: 20220808
  Receipt Date: 20220921
  Transmission Date: 20221027
  Serious: Yes (Other)
  Sender: FDA-Public Use
  Company Number: CA-CELLTRION INC.-2021CA008450

PATIENT

DRUGS (9)
  1. INFLECTRA [Suspect]
     Active Substance: INFLIXIMAB-DYYB
     Indication: Colitis ulcerative
     Dosage: 5 MG/KG, INDUCTION: WEEK 0, 2, 6 THEN MAINTENANCE: EVERY 8 WEEKS
     Route: 042
     Dates: start: 20210428
  2. INFLECTRA [Suspect]
     Active Substance: INFLIXIMAB-DYYB
     Dosage: 5 MG/KG, INDUCTION: WEEK 0, 2, 6 THEN MAINTENANCE: EVERY 8 WEEKS
     Route: 042
     Dates: start: 20210507
  3. INFLECTRA [Suspect]
     Active Substance: INFLIXIMAB-DYYB
     Dosage: 5 MG/KG, INDUCTION: WEEK 0, 2, 6 THEN MAINTENANCE: EVERY 8 WEEKS
     Route: 042
     Dates: start: 20210520
  4. INFLECTRA [Suspect]
     Active Substance: INFLIXIMAB-DYYB
     Dosage: 5 MG/KG, INDUCTION: WEEK 0, 2, 6 THEN MAINTENANCE: EVERY 8 WEEKS
     Route: 042
     Dates: start: 20210520
  5. INFLECTRA [Suspect]
     Active Substance: INFLIXIMAB-DYYB
     Dosage: 500 MG INDUCTION: WEEK 0, 2, 6 THEN MAINTENANCE: EVERY 8 WEEKS
     Route: 042
     Dates: start: 20210617
  6. INFLECTRA [Suspect]
     Active Substance: INFLIXIMAB-DYYB
     Dosage: 500 MG INDUCTION: WEEK 0, 2, 6 THEN MAINTENANCE: EVERY 8 WEEKS
     Route: 042
     Dates: start: 20220203
  7. INFLECTRA [Suspect]
     Active Substance: INFLIXIMAB-DYYB
     Dosage: 500 MG INDUCTION: WEEK 0, 2, 6 THEN MAINTENANCE: EVERY 8 WEEKS
     Route: 042
     Dates: start: 20220331
  8. INFLECTRA [Suspect]
     Active Substance: INFLIXIMAB-DYYB
     Dosage: 5 MG/KG, INDUCTION: WEEK 0, 2, 6 THEN MAINTENANCE: EVERY 8 WEEKS
     Route: 042
     Dates: start: 20220530
  9. INFLECTRA [Suspect]
     Active Substance: INFLIXIMAB-DYYB
     Dosage: 5 MG/KG, INDUCTION: WEEK 0, 2, 6 THEN MAINTENANCE: EVERY 8 WEEKS
     Route: 042
     Dates: start: 20220728

REACTIONS (5)
  - Hypertension [Not Recovered/Not Resolved]
  - Blood pressure increased [Unknown]
  - Condition aggravated [Recovered/Resolved]
  - Heart rate decreased [Unknown]
  - Off label use [Unknown]

NARRATIVE: CASE EVENT DATE: 20210507
